FAERS Safety Report 16417764 (Version 3)
Quarter: 2019Q3

REPORT INFORMATION
  Report Type: Spontaneous
  Country: ES (occurrence: ES)
  Receive Date: 20190611
  Receipt Date: 20190909
  Transmission Date: 20191004
  Serious: Yes (Other)
  Sender: FDA-Public Use
  Company Number: PHHY2019ES131658

PATIENT
  Age: 2 Month
  Sex: Male
  Weight: 6.51 kg

DRUGS (5)
  1. DELTIUS [Concomitant]
     Active Substance: CHOLECALCIFEROL
     Indication: PROPHYLAXIS
     Dosage: 2 GTT, QD (10.000 UI/ML)
     Route: 048
     Dates: start: 20190328
  2. REUTERI [Concomitant]
     Indication: INFANTILE COLIC
     Dosage: 5 GTT, QD
     Route: 048
     Dates: start: 20190408
  3. MINOXIDIL. [Suspect]
     Active Substance: MINOXIDIL
     Indication: PRODUCT USED FOR UNKNOWN INDICATION
     Dosage: UNK
     Route: 048
     Dates: start: 20190424, end: 20190516
  4. OMEPRAZOL [Suspect]
     Active Substance: OMEPRAZOLE
     Indication: INFANTILE SPITTING UP
     Dosage: 1.6 ML, Q12H (2 MG/ML)
     Route: 048
     Dates: start: 20190424
  5. OMEPRAZOL [Suspect]
     Active Substance: OMEPRAZOLE
     Dosage: 1.6 ML, Q12H
     Route: 048
     Dates: start: 20190516, end: 20190529

REACTIONS (2)
  - Hypertrichosis [Recovering/Resolving]
  - Product formulation issue [Recovered/Resolved]

NARRATIVE: CASE EVENT DATE: 20190424
